FAERS Safety Report 4763297-4 (Version None)
Quarter: 2005Q3

REPORT INFORMATION
  Report Type: 
  Country: None (occurrence: None)
  Receive Date: 20050902
  Receipt Date: 20050819
  Transmission Date: 20060218
  Serious: Yes (Hospitalization)
  Sender: FDA-Public Use
  Company Number: 2005P1000250

PATIENT
  Age: 65 Year
  Sex: Male

DRUGS (7)
  1. RETEVASE [Suspect]
     Indication: ACUTE MYOCARDIAL INFARCTION
     Dosage: IV
     Route: 042
     Dates: start: 20050430
  2. ASPIRIN [Concomitant]
  3. ATORVASTATIN CALCIUM [Concomitant]
  4. PERINDOPRIL [Concomitant]
  5. BISOPROLOL [Concomitant]
  6. BUDESONIDE [Concomitant]
  7. ABCIXIMAB(ABCIXIMAB) [Suspect]
     Indication: ACUTE MYOCARDIAL INFARCTION
     Dosage: IV
     Route: 042
     Dates: start: 20050430

REACTIONS (9)
  - ARTERIAL OCCLUSIVE DISEASE [None]
  - BRONCHOSPASM [None]
  - CARDIAC FAILURE CONGESTIVE [None]
  - CORONARY ARTERY STENOSIS [None]
  - ELECTROCARDIOGRAM T WAVE AMPLITUDE DECREASED [None]
  - HYPERHIDROSIS [None]
  - MUSCULOSKELETAL CHEST PAIN [None]
  - VENTRICULAR DYSFUNCTION [None]
  - WHEEZING [None]
